FAERS Safety Report 5033737-4 (Version None)
Quarter: 2006Q2

REPORT INFORMATION
  Report Type: 
  Country: None (occurrence: None)
  Receive Date: 20060623
  Receipt Date: 20060612
  Transmission Date: 20061013
  Serious: Yes (Congenital Anomaly)
  Sender: FDA-Public Use
  Company Number: US-MERCK-0606USA02727

PATIENT

DRUGS (1)
  1. SINGULAIR [Suspect]
     Indication: ASTHMA

REACTIONS (1)
  - CONGENITAL ANOMALY [None]
